FAERS Safety Report 10433016 (Version 1)
Quarter: 2014Q3

REPORT INFORMATION
  Report Type: Spontaneous
  Country: US (occurrence: None)
  Receive Date: 20140904
  Receipt Date: 20140904
  Transmission Date: 20150326
  Serious: Yes (Other)
  Sender: FDA-Public Use
  Company Number: None

PATIENT
  Age: 23 Year
  Sex: Female
  Weight: 64.41 kg

DRUGS (9)
  1. PROTONIX [Concomitant]
     Active Substance: PANTOPRAZOLE SODIUM
  2. CARAFATE [Concomitant]
     Active Substance: SUCRALFATE
  3. CRANBERRY. [Concomitant]
     Active Substance: CRANBERRY
  4. DICYCLOMINE [Suspect]
     Active Substance: DICYCLOMINE HYDROCHLORIDE
     Indication: ILL-DEFINED DISORDER
     Dosage: APX 8/6 - 8/11/14, 10MG, TID, ORAL
     Route: 048
     Dates: start: 20140806, end: 20140811
  5. VITAMIN B COMPLEX WITH C [Concomitant]
     Active Substance: ASCORBIC ACID\CALCIUM PANTOTHENATE\CYANOCOBALAMIN\NIACINAMIDE\PYRIDOXINE HYDROCHLORIDE\RIBOFLAVIN\THIAMINE MONONITRATE
  6. DICYCLOMINE [Suspect]
     Active Substance: DICYCLOMINE HYDROCHLORIDE
     Indication: ULCER
     Dosage: APX 8/6 - 8/11/14, 10MG, TID, ORAL
     Route: 048
     Dates: start: 20140806, end: 20140811
  7. VITAMIN C [Concomitant]
     Active Substance: ASCORBIC ACID
  8. DICYCLOMINE [Suspect]
     Active Substance: DICYCLOMINE HYDROCHLORIDE
     Indication: IRRITABLE BOWEL SYNDROME
     Dosage: APX 8/6 - 8/11/14, 10MG, TID, ORAL
     Route: 048
     Dates: start: 20140806, end: 20140811
  9. DICYCLOMINE [Suspect]
     Active Substance: DICYCLOMINE HYDROCHLORIDE
     Indication: GASTRITIS
     Dosage: APX 8/6 - 8/11/14, 10MG, TID, ORAL
     Route: 048
     Dates: start: 20140806, end: 20140811

REACTIONS (11)
  - Mood swings [None]
  - Hypophagia [None]
  - Feeling abnormal [None]
  - Dizziness [None]
  - Feeling hot [None]
  - Pyrexia [None]
  - Hallucination [None]
  - Vomiting [None]
  - Nausea [None]
  - Pharyngeal oedema [None]
  - Dysphagia [None]

NARRATIVE: CASE EVENT DATE: 20140809
